FAERS Safety Report 13104373 (Version 1)
Quarter: 2017Q1

REPORT INFORMATION
  Report Type: Spontaneous
  Country: US (occurrence: US)
  Receive Date: 20170110
  Receipt Date: 20170110
  Transmission Date: 20170428
  Serious: Yes (Hospitalization)
  Sender: FDA-Public Use
  Company Number: None

PATIENT
  Age: 15 Year
  Sex: Male
  Weight: 71.55 kg

DRUGS (1)
  1. BENTYL [Suspect]
     Active Substance: DICYCLOMINE HYDROCHLORIDE
     Route: 030
     Dates: start: 20161225

REACTIONS (3)
  - Diarrhoea [None]
  - Injection site necrosis [None]
  - Vomiting [None]

NARRATIVE: CASE EVENT DATE: 20161225
